FAERS Safety Report 8855006 (Version 2)
Quarter: 2014Q2

REPORT INFORMATION
  Report Type: Spontaneous
  Country: US (occurrence: US)
  Receive Date: 20121023
  Receipt Date: 20131024
  Transmission Date: 20141212
  Serious: No
  Sender: FDA-Public Use
  Company Number: US-PFIZER INC-2012262414

PATIENT
  Age: 48 Year
  Sex: Female
  Weight: 92.1 kg

DRUGS (4)
  1. DEPO-MEDROL [Suspect]
     Indication: HYPERSENSITIVITY
     Dosage: ONCE A YEAR
     Dates: start: 200808
  2. ZYRTEC [Concomitant]
     Dosage: UNK
  3. RANITIDINE [Concomitant]
     Dosage: 300MG
  4. KENALOG-40 [Concomitant]
     Dosage: UNK

REACTIONS (1)
  - Hypersensitivity [Recovered/Resolved]
